FAERS Safety Report 24670096 (Version 1)
Quarter: 2024Q4

REPORT INFORMATION
  Report Type: Spontaneous
  Country: US (occurrence: None)
  Receive Date: 20241126
  Receipt Date: 20241126
  Transmission Date: 20250114
  Serious: No
  Sender: Public
  Company Number: None

PATIENT
  Sex: 0

DRUGS (5)
  1. GLIPIZIDE [Suspect]
     Active Substance: GLIPIZIDE
  2. PRISTIQ EXTENDED-RELEASE [Suspect]
     Active Substance: DESVENLAFAXINE SUCCINATE
  3. MIRTAZAPINE [Suspect]
     Active Substance: MIRTAZAPINE
  4. TRINTELLIX [Suspect]
     Active Substance: VORTIOXETINE HYDROBROMIDE
  5. SEROQUEL [Suspect]
     Active Substance: QUETIAPINE FUMARATE

REACTIONS (2)
  - Major depression [None]
  - Depression [None]
